FAERS Safety Report 12899850 (Version 1)
Quarter: 2016Q4

REPORT INFORMATION
  Report Type: Spontaneous
  Country: JP (occurrence: JP)
  Receive Date: 20161101
  Receipt Date: 20161101
  Transmission Date: 20170207
  Serious: Yes (Life-Threatening, Hospitalization, Other)
  Sender: FDA-Public Use
  Company Number: JP-PFIZER INC-2016396149

PATIENT
  Age: 79 Year
  Sex: Male
  Weight: 55 kg

DRUGS (19)
  1. RINDERON V [Suspect]
     Active Substance: BETAMETHASONE VALERATE
     Dosage: 0.5 MG, 1X/DAY
     Route: 048
     Dates: start: 20160504, end: 20160510
  2. CALCIUM LACTATE [Concomitant]
     Active Substance: CALCIUM LACTATE
     Dosage: 3 G, DAILY
     Route: 048
     Dates: start: 20160620, end: 20160809
  3. LOSARTAN POTASSIUM. [Concomitant]
     Active Substance: LOSARTAN POTASSIUM
     Dosage: 50 MG, DAILY
     Route: 048
     Dates: start: 20160520, end: 20160809
  4. SUTENT [Suspect]
     Active Substance: SUNITINIB MALATE
     Indication: RENAL CELL CARCINOMA
     Dosage: 50 MG, DAILY
     Route: 048
     Dates: start: 20160511, end: 20160720
  5. RINDERON V [Suspect]
     Active Substance: BETAMETHASONE VALERATE
     Dosage: 1 MG, 2X/DAY
     Route: 048
     Dates: start: 20160430, end: 20160501
  6. OXYCODONE [Concomitant]
     Active Substance: OXYCODONE
     Dosage: 10 MG, 2X/DAY
     Route: 048
     Dates: start: 20160612, end: 20160626
  7. FAMOTIDINE. [Concomitant]
     Active Substance: FAMOTIDINE
     Dosage: 10 MG, 1X/DAY
     Route: 048
     Dates: start: 20160428
  8. MAGMITT [Concomitant]
     Active Substance: MAGNESIUM OXIDE
     Dosage: 330 MG, 3X/DAY
     Route: 048
     Dates: start: 20160513, end: 20160809
  9. AMITIZA [Concomitant]
     Active Substance: LUBIPROSTONE
     Dosage: 24 UG, 2X/DAY
     Route: 048
     Dates: start: 20160728, end: 20160807
  10. RINDERON V [Suspect]
     Active Substance: BETAMETHASONE VALERATE
     Dosage: 4 MG, 2X/DAY
     Route: 048
     Dates: start: 20160425, end: 20160427
  11. RINDERON V [Suspect]
     Active Substance: BETAMETHASONE VALERATE
     Dosage: 2 MG, 2X/DAY
     Route: 048
     Dates: start: 20160428, end: 20160429
  12. RINDERON V [Suspect]
     Active Substance: BETAMETHASONE VALERATE
     Dosage: 0.5 MG, 2X/DAY
     Route: 048
     Dates: start: 20160502, end: 20160503
  13. CALONAL [Concomitant]
     Active Substance: ACETAMINOPHEN
     Dosage: 400 MG, 3X/DAY
     Route: 048
     Dates: start: 20160429, end: 20160601
  14. OXYCODONE [Concomitant]
     Active Substance: OXYCODONE
     Dosage: 5 MG, 2X/DAY
     Route: 048
     Dates: start: 20160602, end: 20160612
  15. CALFINA [Concomitant]
     Active Substance: ALFACALCIDOL
     Dosage: 0.25 UG, 1X/DAY
     Route: 048
     Dates: start: 20160620, end: 20160809
  16. SUTENT [Suspect]
     Active Substance: SUNITINIB MALATE
     Dosage: 37.5 MG, DAILY
     Route: 048
     Dates: start: 20160721, end: 20160808
  17. RINDERON V [Suspect]
     Active Substance: BETAMETHASONE VALERATE
     Dosage: 0.5 MG, 2X/DAY
     Route: 048
     Dates: start: 20160627, end: 20160710
  18. DUROTEP MT [Concomitant]
     Active Substance: FENTANYL
     Dosage: 2.1 MG, CYCLIC
     Route: 062
     Dates: start: 20160627
  19. RINDERON V [Suspect]
     Active Substance: BETAMETHASONE VALERATE
     Dosage: 0.5 MG, 1X/DAY
     Route: 048
     Dates: start: 20160711, end: 20160809

REACTIONS (2)
  - Cholecystitis [Recovering/Resolving]
  - Fistula of small intestine [Recovering/Resolving]

NARRATIVE: CASE EVENT DATE: 20160810
